FAERS Safety Report 18672744 (Version 1)
Quarter: 2020Q4

REPORT INFORMATION
  Report Type: Spontaneous
  Country: US (occurrence: US)
  Receive Date: 20201228
  Receipt Date: 20201228
  Transmission Date: 20210114
  Serious: No
  Sender: FDA-Public Use
  Company Number: US-AMNEAL PHARMACEUTICALS-2020-AMRX-02422

PATIENT
  Sex: Male

DRUGS (4)
  1. OXYBUTYNIN CHLORIDE ER [Suspect]
     Active Substance: OXYBUTYNIN CHLORIDE
     Dosage: 5 MILLIGRAM, 1 /DAY
     Route: 065
     Dates: start: 20200611, end: 20200630
  2. OXYBUTYNIN CHLORIDE ER [Suspect]
     Active Substance: OXYBUTYNIN CHLORIDE
     Dosage: 10 MILLIGRAM
     Route: 065
     Dates: start: 20200706, end: 20200719
  3. OXYBUTYNIN CHLORIDE ER [Suspect]
     Active Substance: OXYBUTYNIN CHLORIDE
     Indication: BLADDER DISORDER
     Dosage: 10 MILLIGRAM,14 DAYS
     Route: 065
     Dates: end: 20200521
  4. OXYBUTYNIN CHLORIDE ER [Suspect]
     Active Substance: OXYBUTYNIN CHLORIDE
     Dosage: 5 MILLIGRAM, ONE IN MORNING AND ONE IN NIGHT
     Route: 065
     Dates: start: 20200522, end: 20200610

REACTIONS (5)
  - Gait disturbance [Unknown]
  - Drug ineffective [Unknown]
  - Visual impairment [Unknown]
  - Somnolence [Unknown]
  - Asthenia [Unknown]

NARRATIVE: CASE EVENT DATE: 2020
